FAERS Safety Report 11330090 (Version 1)
Quarter: 2015Q3

REPORT INFORMATION
  Report Type: Spontaneous
  Country: SE (occurrence: SE)
  Receive Date: 20150803
  Receipt Date: 20150803
  Transmission Date: 20151125
  Serious: Yes (Other)
  Sender: FDA-Public Use
  Company Number: SE-TEVA-582675ISR

PATIENT
  Age: 49 Year
  Sex: Male

DRUGS (1)
  1. SERTRALINE [Suspect]
     Active Substance: SERTRALINE HYDROCHLORIDE
     Route: 048

REACTIONS (1)
  - Cholestasis [Not Recovered/Not Resolved]
